FAERS Safety Report 6040630-7 (Version None)
Quarter: 2009Q1

REPORT INFORMATION
  Report Type: 
  Country: None (occurrence: None)
  Receive Date: 20090116
  Receipt Date: 20080421
  Transmission Date: 20090719
  Serious: No
  Sender: FDA-Public Use
  Company Number: US-BRISTOL-MYERS SQUIBB COMPANY-14159149

PATIENT
  Age: 65 Year
  Sex: Female
  Weight: 76 kg

DRUGS (5)
  1. ABILIFY [Suspect]
     Indication: DEPRESSION
     Dates: start: 20080401
  2. ABILIFY [Suspect]
     Indication: ANXIETY
     Dates: start: 20080401
  3. IMIPRAMINE [Concomitant]
  4. KLONOPIN [Concomitant]
  5. ACTOPLUS MET [Concomitant]

REACTIONS (1)
  - BLOOD GLUCOSE INCREASED [None]
